FAERS Safety Report 9342338 (Version 2)
Quarter: 2013Q3

REPORT INFORMATION
  Report Type: Spontaneous
  Country: FR (occurrence: FR)
  Receive Date: 20130611
  Receipt Date: 20130726
  Transmission Date: 20140515
  Serious: Yes (Other)
  Sender: FDA-Public Use
  Company Number: FR-JNJFOC-20130602245

PATIENT
  Age: 50 Year
  Sex: Female
  Weight: 50 kg

DRUGS (4)
  1. REMICADE [Suspect]
     Indication: PSORIASIS
     Route: 042
     Dates: start: 20130605
  2. REMICADE [Suspect]
     Indication: PSORIASIS
     Route: 042
     Dates: start: 201304
  3. REMICADE [Suspect]
     Indication: PSORIASIS
     Route: 042
     Dates: start: 201004
  4. LEVOTHYROX [Concomitant]
     Dosage: 50, STARTED 15 YEARS AGO
     Route: 065

REACTIONS (4)
  - Neuropathy peripheral [Recovered/Resolved]
  - Diplegia [Recovered/Resolved]
  - Herpes virus infection [Unknown]
  - Pyrexia [Unknown]
